FAERS Safety Report 11362456 (Version 3)
Quarter: 2015Q3

REPORT INFORMATION
  Report Type: Report from Study
  Country: US (occurrence: US)
  Receive Date: 20150810
  Receipt Date: 20150819
  Transmission Date: 20151125
  Serious: Yes (Hospitalization)
  Sender: FDA-Public Use
  Company Number: US-AMGEN-USACT2015079594

PATIENT
  Age: 53 Year
  Sex: Male
  Weight: 74.8 kg

DRUGS (4)
  1. CARFILZOMIB [Suspect]
     Active Substance: CARFILZOMIB
     Indication: PLASMA CELL MYELOMA
     Dosage: 38.4 MG, PER CHEMO REGIM
     Route: 065
     Dates: start: 20150727, end: 20150728
  2. FUROSEMIDE. [Concomitant]
     Active Substance: FUROSEMIDE
     Indication: ASCITES
     Dosage: 40 MG, UNK
     Dates: start: 201410, end: 20150805
  3. OXYCODONE [Concomitant]
     Active Substance: OXYCODONE
     Indication: PAIN
     Dosage: 10 MG, AS NECESSARY
     Dates: start: 20150609, end: 20150806
  4. DEXAMETHASONE. [Concomitant]
     Active Substance: DEXAMETHASONE
     Indication: PREMEDICATION
     Dosage: 8 MG, AS NECESSARY
     Route: 042
     Dates: start: 20150727, end: 20150728

REACTIONS (2)
  - Ascites [Unknown]
  - Abdominal pain [Unknown]

NARRATIVE: CASE EVENT DATE: 20150730
